FAERS Safety Report 7825469-1 (Version None)
Quarter: 2011Q4

REPORT INFORMATION
  Report Type: 
  Country: None (occurrence: None)
  Receive Date: 20111019
  Receipt Date: 20111007
  Transmission Date: 20120403
  Serious: Yes (Other)
  Sender: FDA-Public Use
  Company Number: FR-ROCHE-730473

PATIENT
  Sex: Female
  Weight: 68 kg

DRUGS (7)
  1. IMODIUM [Concomitant]
     Dosage: TDD REPORTED AS PRN
  2. BETAMETHASONE [Concomitant]
     Dosage: 1 APPLICATION
  3. DEXCHLORPHENIRAMINE MALEATE [Concomitant]
  4. HIDROXIZIN [Concomitant]
  5. VEMURAFENIB [Suspect]
     Indication: METASTATIC MALIGNANT MELANOMA
     Dosage: LAST DOSE PRIOR TO SAE: 26 AUGUST 2010.
     Route: 048
  6. ALUMINUM HYDROXIDE AND MAGNESIUM TRISILICATE [Concomitant]
     Dosage: TDD REPORTED AS PRN
  7. DESLORATADINE [Concomitant]

REACTIONS (3)
  - MALIGNANT MELANOMA [None]
  - KERATOACANTHOMA [None]
  - SQUAMOUS CELL CARCINOMA OF SKIN [None]
